FAERS Safety Report 4428410-7 (Version None)
Quarter: 2004Q3

REPORT INFORMATION
  Report Type: 
  Country: None (occurrence: None)
  Receive Date: 20040816
  Receipt Date: 20040803
  Transmission Date: 20050211
  Serious: Yes (Other)
  Sender: FDA-Public Use
  Company Number: 2004052884

PATIENT
  Age: 36 Year
  Sex: Male
  Weight: 127.0072 kg

DRUGS (2)
  1. DRAMAMINE [Suspect]
     Indication: MOTION SICKNESS
     Dosage: 1 TABLET ONCE, ORAL
     Route: 048
     Dates: start: 20040714, end: 20040714
  2. AMITRIPTYLINE HYDROCHLORIDE [Concomitant]

REACTIONS (3)
  - HYPERHIDROSIS [None]
  - PALLOR [None]
  - TACHYARRHYTHMIA [None]
